FAERS Safety Report 12170539 (Version 1)
Quarter: 2016Q1

REPORT INFORMATION
  Report Type: Spontaneous
  Country: CZ (occurrence: CZ)
  Receive Date: 20160311
  Receipt Date: 20160311
  Transmission Date: 20160526
  Serious: Yes (Other)
  Sender: FDA-Public Use
  Company Number: CZ-AMGEN-CZESP2016025238

PATIENT
  Age: 61 Year
  Sex: Male

DRUGS (7)
  1. OXALIPLATIN MYLAN [Suspect]
     Active Substance: OXALIPLATIN
     Indication: COLORECTAL CANCER METASTATIC
     Dosage: 170 MG, 2W
     Route: 042
     Dates: start: 20160217, end: 20160217
  2. FOLINIC ACID [Concomitant]
     Active Substance: LEUCOVORIN
     Indication: COLORECTAL CANCER METASTATIC
     Dosage: UNK
  3. CALCIUM FOLINATE [Concomitant]
     Active Substance: LEUCOVORIN CALCIUM
     Indication: COLORECTAL CANCER METASTATIC
     Dosage: 800 MG, 2 W
     Route: 042
     Dates: start: 20160217, end: 20160217
  4. VECTIBIX [Suspect]
     Active Substance: PANITUMUMAB
     Indication: COLORECTAL CANCER METASTATIC
     Dosage: 600 MG, 2 WEEKLY
     Route: 042
     Dates: start: 20160128, end: 20160217
  5. 5-FU                               /00098801/ [Concomitant]
     Active Substance: FLUOROURACIL
     Indication: COLORECTAL CANCER METASTATIC
     Dosage: UNK
  6. DOXYBENE [Concomitant]
     Indication: RASH
     Dosage: 100 MG, 1-0-1
     Dates: start: 20160210
  7. FRAXIPARINE FORTE [Concomitant]
     Indication: PROPHYLAXIS
     Dosage: 0.8 ML, 1XD
     Route: 058
     Dates: start: 20160120

REACTIONS (3)
  - Hypersensitivity [Recovered/Resolved]
  - Angioedema [Recovered/Resolved]
  - Blood pressure decreased [Recovered/Resolved]

NARRATIVE: CASE EVENT DATE: 20160217
